FAERS Safety Report 13023284 (Version 1)
Quarter: 2016Q4

REPORT INFORMATION
  Report Type: Spontaneous
  Country: US (occurrence: US)
  Receive Date: 20161213
  Receipt Date: 20161213
  Transmission Date: 20170207
  Serious: No
  Sender: FDA-Public Use
  Company Number: US-R-PHARM US LLC-2015RPM04148

PATIENT
  Sex: Female

DRUGS (1)
  1. IXABEPILONE [Suspect]
     Active Substance: IXABEPILONE

REACTIONS (1)
  - Neuropathy peripheral [Unknown]
